FAERS Safety Report 5753103-3 (Version None)
Quarter: 2008Q2

REPORT INFORMATION
  Report Type: 
  Country: None (occurrence: None)
  Receive Date: 20080529
  Receipt Date: 20080521
  Transmission Date: 20081010
  Serious: Yes (Life-Threatening, Hospitalization)
  Sender: FDA-Public Use
  Company Number: GB-SANOFI-SYNTHELABO-A01200805796

PATIENT
  Age: 65 Year
  Sex: Female
  Weight: 71 kg

DRUGS (10)
  1. RAMIPRIL [Concomitant]
  2. ONDANSETRON [Concomitant]
  3. OMEPRAZOLE [Concomitant]
  4. DOMPERIDONE [Concomitant]
  5. DEXAMETHASONE TAB [Concomitant]
  6. CYCLIZINE [Concomitant]
  7. XELODA [Concomitant]
  8. BENDROFLUMETHIAZIDE [Concomitant]
  9. ATENOLOL [Concomitant]
  10. OXALIPLATIN [Suspect]
     Dosage: 200 MG
     Route: 041
     Dates: start: 20080513, end: 20080513

REACTIONS (2)
  - LARYNGOSPASM [None]
  - THROAT IRRITATION [None]
